FAERS Safety Report 10165683 (Version 2)
Quarter: 2014Q4

REPORT INFORMATION
  Report Type: Spontaneous
  Country: US (occurrence: US)
  Receive Date: 20140510
  Receipt Date: 20141205
  Transmission Date: 20150528
  Serious: No
  Sender: FDA-Public Use
  Company Number: US-BRISTOL-MYERS SQUIBB COMPANY-19886399

PATIENT
  Age: 61 Year
  Sex: Male
  Weight: 149.66 kg

DRUGS (3)
  1. METOPROLOL [Concomitant]
     Active Substance: METOPROLOL
  2. CLONIDINE. [Concomitant]
     Active Substance: CLONIDINE
     Dosage: TAB
  3. BYDUREON [Suspect]
     Active Substance: EXENATIDE
     Indication: TYPE 2 DIABETES MELLITUS
     Dosage: SAMPLE TRAY LOT/EXP:72635/ AUG2013,DILUENT SYRINGE LOT/EXP:72635/AUG2013,BAT.NO-73839,EXP.DT-JUN2016
     Route: 058

REACTIONS (4)
  - Blood glucose increased [Recovering/Resolving]
  - Injection site haemorrhage [Unknown]
  - Expired product administered [Unknown]
  - Product quality issue [Unknown]
